FAERS Safety Report 18524349 (Version 1)
Quarter: 2020Q4

REPORT INFORMATION
  Report Type: Spontaneous
  Country: IT (occurrence: IT)
  Receive Date: 20201120
  Receipt Date: 20201120
  Transmission Date: 20210114
  Serious: Yes (Other)
  Sender: FDA-Public Use
  Company Number: IT-BAUSCH-BL-2020-033092

PATIENT
  Age: 78 Year
  Sex: Female

DRUGS (20)
  1. HYDROXYCHLOROQUINE [Suspect]
     Active Substance: HYDROXYCHLOROQUINE
     Indication: COVID-19
     Route: 065
  2. CEFTRIAXONE. [Suspect]
     Active Substance: CEFTRIAXONE
     Indication: COVID-19
     Route: 065
  3. PIPERACILLIN/TAZOBACTAM [Suspect]
     Active Substance: PIPERACILLIN SODIUM\TAZOBACTAM SODIUM
     Indication: COVID-19
     Route: 065
  4. DEXAMETHASONE. [Suspect]
     Active Substance: DEXAMETHASONE
     Indication: OFF LABEL USE
  5. OSELTAMIVIR [Suspect]
     Active Substance: OSELTAMIVIR
     Indication: COVID-19
     Route: 065
  6. PARACETAMOL [Suspect]
     Active Substance: ACETAMINOPHEN
     Indication: OFF LABEL USE
  7. CEFTRIAXONE. [Suspect]
     Active Substance: CEFTRIAXONE
     Indication: OFF LABEL USE
  8. DEXAMETHASONE. [Suspect]
     Active Substance: DEXAMETHASONE
     Indication: COVID-19
     Route: 065
  9. SODIUM ENOXAPARIN [Suspect]
     Active Substance: ENOXAPARIN SODIUM
     Indication: OFF LABEL USE
  10. POTASSIUM CANRENOATE [Suspect]
     Active Substance: CANRENOATE POTASSIUM
     Indication: COVID-19
     Route: 065
  11. LEVOFLOXACIN. [Suspect]
     Active Substance: LEVOFLOXACIN
     Indication: OFF LABEL USE
  12. PARACETAMOL [Suspect]
     Active Substance: ACETAMINOPHEN
     Indication: COVID-19
     Route: 065
  13. PANTOPRAZOLE [Suspect]
     Active Substance: PANTOPRAZOLE
     Indication: COVID-19
     Route: 065
  14. OSELTAMIVIR [Suspect]
     Active Substance: OSELTAMIVIR
     Indication: OFF LABEL USE
  15. LEVOFLOXACIN. [Suspect]
     Active Substance: LEVOFLOXACIN
     Indication: COVID-19
     Route: 065
  16. SODIUM ENOXAPARIN [Suspect]
     Active Substance: ENOXAPARIN SODIUM
     Indication: COVID-19
     Route: 065
  17. POTASSIUM CANRENOATE [Suspect]
     Active Substance: CANRENOATE POTASSIUM
     Indication: OFF LABEL USE
  18. HYDROXYCHLOROQUINE [Suspect]
     Active Substance: HYDROXYCHLOROQUINE
     Indication: OFF LABEL USE
  19. PIPERACILLIN/TAZOBACTAM [Suspect]
     Active Substance: PIPERACILLIN SODIUM\TAZOBACTAM SODIUM
     Indication: OFF LABEL USE
  20. PANTOPRAZOLE [Suspect]
     Active Substance: PANTOPRAZOLE
     Indication: OFF LABEL USE

REACTIONS (2)
  - Toxic epidermal necrolysis [Recovered/Resolved]
  - Off label use [Unknown]
